FAERS Safety Report 8583089-8 (Version None)
Quarter: 2012Q3

REPORT INFORMATION
  Report Type: 
  Country: None (occurrence: None)
  Receive Date: 20120809
  Receipt Date: 20120730
  Transmission Date: 20120928
  Serious: Yes (Hospitalization)
  Sender: FDA-Public Use
  Company Number: US-CELGENEUS-163-21880-12080178

PATIENT
  Sex: Female

DRUGS (16)
  1. PRILOSEC [Concomitant]
     Indication: DYSPEPSIA
     Route: 065
     Dates: start: 20120726
  2. HEPARIN [Concomitant]
     Dosage: 5000 UNITS
     Route: 041
     Dates: start: 20120701
  3. MAG-AL-PLUS [Concomitant]
     Dosage: 30 MILLILITER
     Route: 048
     Dates: start: 20120701
  4. ZOFRAN [Concomitant]
     Dosage: 4 MILLIGRAM
     Route: 048
     Dates: start: 20120701
  5. BENADRYL [Concomitant]
     Dosage: 25 MILLIGRAM
     Route: 048
     Dates: start: 20120701, end: 20120729
  6. ASPIRIN [Concomitant]
     Dosage: 81 MILLIGRAM
     Route: 048
     Dates: start: 20120701
  7. GLUCOSAMINE CHONDROITIN [Concomitant]
     Dosage: 1 TABLET
     Route: 048
     Dates: start: 20120701
  8. SODIUM CHLORIDE [Concomitant]
     Dosage: .9 PERCENT
     Route: 041
     Dates: start: 20120701
  9. MORPHINE [Concomitant]
     Dosage: 2 MILLIGRAM
     Route: 065
     Dates: start: 20120701
  10. MULTI-VITAMINS [Concomitant]
     Dosage: 1 TABLET
     Route: 048
     Dates: start: 20120701
  11. DULCOLAX [Concomitant]
     Dosage: 10 MILLIGRAM
     Route: 048
     Dates: start: 20120701
  12. ALLOPURINOL [Concomitant]
     Dosage: 300 MILLIGRAM
     Route: 048
     Dates: start: 20120701
  13. CALCIUM CARBONATE [Concomitant]
     Dosage: 2 TABLET
     Route: 048
     Dates: start: 20120701
  14. TYLENOL [Concomitant]
     Dosage: 650 MILLIGRAM
     Route: 048
     Dates: start: 20120701
  15. REVLIMID [Suspect]
     Dosage: 2.5 MILLIGRAM
     Route: 048
     Dates: start: 20120718, end: 20120725
  16. VICODIN [Concomitant]
     Dosage: 1 TABLET
     Route: 048
     Dates: start: 20120701

REACTIONS (3)
  - FEBRILE NEUTROPENIA [None]
  - PANCYTOPENIA [None]
  - SYSTEMIC INFLAMMATORY RESPONSE SYNDROME [None]
